FAERS Safety Report 20653386 (Version 1)
Quarter: 2022Q1

REPORT INFORMATION
  Report Type: Spontaneous
  Country: DE (occurrence: None)
  Receive Date: 20220330
  Receipt Date: 20220330
  Transmission Date: 20220423
  Serious: Yes (Hospitalization, Other)
  Sender: FDA-Public Use
  Company Number: 2022A122844

PATIENT
  Age: 72 Year
  Sex: Male

DRUGS (6)
  1. DAPAGLIFLOZIN [Suspect]
     Active Substance: DAPAGLIFLOZIN
     Route: 048
  2. APIXABAN [Concomitant]
     Active Substance: APIXABAN
     Dosage: 1-0-1
  3. METOPROLOL [Concomitant]
     Active Substance: METOPROLOL
     Dosage: 1-0-0.5
  4. SPIRONOLACTONE [Concomitant]
     Active Substance: SPIRONOLACTONE
     Dosage: 1-0-0
  5. SACUBITRIL\VALSARTAN [Concomitant]
     Active Substance: SACUBITRIL\VALSARTAN
     Dosage: 0.5-0-0.5
  6. TORSEMIDE [Concomitant]
     Active Substance: TORSEMIDE
     Dosage: 1-0-0

REACTIONS (5)
  - Thrombosis [Recovered/Resolved]
  - Cerebellar infarction [Unknown]
  - Hyperhidrosis [Unknown]
  - Chest discomfort [Unknown]
  - Dyspnoea [Unknown]
